FAERS Safety Report 4382927-2 (Version None)
Quarter: 2004Q2

REPORT INFORMATION
  Report Type: 
  Country: None (occurrence: None)
  Receive Date: 20040617
  Receipt Date: 20040608
  Transmission Date: 20050107
  Serious: Yes (Hospitalization)
  Sender: FDA-Public Use
  Company Number: 206115

PATIENT
  Age: 70 Year
  Sex: Female
  Weight: 64 kg

DRUGS (37)
  1. BEVACIZUMAB (BEVACIZUMAB) PWDR + SOLVENT, INFUSION SOLN, 100MG [Suspect]
     Indication: COLORECTAL CANCER METASTATIC
     Dosage: 5 MG/KG, Q2W, INTRAVENOUS
     Route: 042
     Dates: start: 20040330
  2. OXALIPLATIN (OXALIPLATIN) [Concomitant]
  3. FLUOROURACIL [Concomitant]
  4. LEUCOVORIN CALCIUM [Concomitant]
  5. PHENERGAN [Concomitant]
  6. CIPROFLOXACIN [Concomitant]
  7. FERROUS SULFATE TAB [Concomitant]
  8. FLAGYL [Concomitant]
  9. CEPHALOSPORIN (CEPHALOSPORIN NOS) [Concomitant]
  10. NITROGLYCERIN [Concomitant]
  11. MORPHINE [Concomitant]
  12. PROCRIT (EPOETIN ALFA) [Concomitant]
  13. MARINOL [Concomitant]
  14. EFFEXOR [Concomitant]
  15. PREVACID [Concomitant]
  16. ISOPROTERENOL (ISOPROTERENOL HYDROCHLORIDE) [Concomitant]
  17. CHROMIUM PICOLINATE (CHROMIUM PICOLINATE) [Concomitant]
  18. SURFAK (DOCUSATE CALCIUM) [Concomitant]
  19. VICODIN [Concomitant]
  20. CALTRATE (CALCIUM CARBONATE) [Concomitant]
  21. BETAPACE [Concomitant]
  22. CIPROFLOXACIN [Concomitant]
  23. FLAGYL [Concomitant]
  24. PERCOCET [Concomitant]
  25. AUGMENTIN (CLAVULANATE POTASSIUM, AMOXICILLIN) [Concomitant]
  26. ASPIRIN [Concomitant]
  27. BENICAR [Concomitant]
  28. COMPAZINE [Concomitant]
  29. OXYCODONE HCL [Concomitant]
  30. METAMUCIL (PSYLLIUM HUSK) [Concomitant]
  31. VITAMINS (VITAMINS NOS) [Concomitant]
  32. FLECAINIDE ACETATE [Concomitant]
  33. ATACARD (ANTITHYMOCYTE IMMUNOGLOBULIN) [Concomitant]
  34. LOMOTIL [Concomitant]
  35. ATENOLOL [Concomitant]
  36. MEGACE [Concomitant]
  37. AMOXICILLIN [Concomitant]

REACTIONS (18)
  - ASCITES [None]
  - ATRIAL FIBRILLATION [None]
  - BLOOD CALCIUM DECREASED [None]
  - BLOOD POTASSIUM DECREASED [None]
  - BLOOD SODIUM DECREASED [None]
  - CLOSTRIDIUM COLITIS [None]
  - COLITIS [None]
  - CONDUCTION DISORDER [None]
  - DEHYDRATION [None]
  - DELIRIUM [None]
  - HAEMATOCRIT DECREASED [None]
  - HAEMOGLOBIN DECREASED [None]
  - ILEUS SPASTIC [None]
  - LUNG NEOPLASM [None]
  - PLEURAL EFFUSION [None]
  - PYREXIA [None]
  - RASH [None]
  - VENTRICULAR EXTRASYSTOLES [None]
